FAERS Safety Report 7400784-4 (Version None)
Quarter: 2011Q2

REPORT INFORMATION
  Report Type: 
  Country: None (occurrence: None)
  Receive Date: 20110407
  Receipt Date: 20110329
  Transmission Date: 20111010
  Serious: Yes (Hospitalization)
  Sender: FDA-Public Use
  Company Number: B0709152A

PATIENT
  Sex: Female

DRUGS (12)
  1. MOPRAL [Concomitant]
  2. ACTONEL [Concomitant]
  3. TRAMADOL [Concomitant]
  4. TAHOR [Concomitant]
  5. CACIT VITAMINE D3 [Concomitant]
  6. ESIDRIX [Concomitant]
  7. LEVOTHYROX [Concomitant]
  8. ARIXTRA [Suspect]
     Indication: DEEP VEIN THROMBOSIS
     Dosage: 7.5MG PER DAY
     Route: 058
     Dates: start: 20110204, end: 20110222
  9. CORTANCYL [Concomitant]
  10. ARAVA [Concomitant]
  11. ZANIDIP [Concomitant]
  12. CARDENSIEL [Concomitant]

REACTIONS (6)
  - RENAL FAILURE ACUTE [None]
  - ANAEMIA [None]
  - CONTRAINDICATION TO MEDICAL TREATMENT [None]
  - MUSCLE HAEMORRHAGE [None]
  - INCORRECT DRUG ADMINISTRATION DURATION [None]
  - OVERDOSE [None]
